FAERS Safety Report 6014797-0 (Version None)
Quarter: 2008Q4

REPORT INFORMATION
  Report Type: 
  Country: None (occurrence: None)
  Receive Date: 20081219
  Receipt Date: 20081218
  Transmission Date: 20090506
  Serious: Yes (Death, Hospitalization)
  Sender: FDA-Public Use
  Company Number: PHEH2008US11235

PATIENT
  Age: 80 Year
  Sex: Male

DRUGS (1)
  1. RECLAST [Suspect]
     Indication: FRACTURE
     Dosage: UNK
     Dates: start: 20081119

REACTIONS (4)
  - BLOOD CREATININE INCREASED [None]
  - BLOOD PRESSURE INCREASED [None]
  - FALL [None]
  - RENAL FAILURE ACUTE [None]
